FAERS Safety Report 5001749-2 (Version None)
Quarter: 2006Q2

REPORT INFORMATION
  Report Type: 
  Country: None (occurrence: None)
  Receive Date: 20060515
  Receipt Date: 20060509
  Transmission Date: 20061013
  Serious: Yes (Other)
  Sender: FDA-Public Use
  Company Number: DE-JNJFOC-20060402773

PATIENT
  Sex: Male
  Weight: 74 kg

DRUGS (4)
  1. DURAGESIC-100 [Suspect]
     Indication: PAIN
     Route: 062
  2. TETRAZEPAM [Concomitant]
     Route: 048
  3. VOLTAREN [Concomitant]
     Route: 048
  4. ZOPICION [Concomitant]
     Route: 048

REACTIONS (2)
  - DREAMY STATE [None]
  - REFUSAL OF TREATMENT BY PATIENT [None]
